FAERS Safety Report 16406621 (Version 2)
Quarter: 2019Q2

REPORT INFORMATION
  Report Type: Spontaneous
  Country: US (occurrence: US)
  Receive Date: 20190607
  Receipt Date: 20190610
  Transmission Date: 20190711
  Serious: Yes (Other)
  Sender: FDA-Public Use
  Company Number: US-CELGENEUS-USA-20190600484

PATIENT
  Age: 51 Year
  Sex: Female
  Weight: 122 kg

DRUGS (1)
  1. OTEZLA [Suspect]
     Active Substance: APREMILAST
     Indication: PSORIASIS
     Dosage: 30 MILLIGRAM
     Route: 048
     Dates: start: 201902

REACTIONS (2)
  - Suicidal ideation [Unknown]
  - Depressive symptom [Unknown]

NARRATIVE: CASE EVENT DATE: 201905
